FAERS Safety Report 25223004 (Version 1)
Quarter: 2025Q2

REPORT INFORMATION
  Report Type: Spontaneous
  Country: US (occurrence: US)
  Receive Date: 20250422
  Receipt Date: 20250422
  Transmission Date: 20250717
  Serious: No
  Sender: GLAXOSMITHKLINE
  Company Number: US-GSK-US2025040870

PATIENT
  Age: 64 Year
  Sex: Female

DRUGS (1)
  1. TRELEGY ELLIPTA [Suspect]
     Active Substance: FLUTICASONE FUROATE\UMECLIDINIUM BROMIDE\VILANTEROL TRIFENATATE
     Indication: Asthma
     Dosage: 100 MG, QD ONCE A DAY
     Dates: start: 2024

REACTIONS (3)
  - Asthma [Recovered/Resolved]
  - Multiple allergies [Unknown]
  - Dizziness [Unknown]

NARRATIVE: CASE EVENT DATE: 20250402
